FAERS Safety Report 25204335 (Version 2)
Quarter: 2025Q3

REPORT INFORMATION
  Report Type: Spontaneous
  Country: US (occurrence: US)
  Receive Date: 20250416
  Receipt Date: 20250721
  Transmission Date: 20251021
  Serious: Yes (Other)
  Sender: BRISTOL-MYERS SQUIBB COMPANY
  Company Number: US-BRISTOL-MYERS SQUIBB COMPANY-2025-056293

PATIENT
  Age: 54 Year
  Sex: Female

DRUGS (2)
  1. ZEPOSIA [Suspect]
     Active Substance: OZANIMOD HYDROCHLORIDE
     Indication: Multiple sclerosis
     Route: 048
     Dates: start: 202401
  2. ZEPOSIA [Suspect]
     Active Substance: OZANIMOD HYDROCHLORIDE
     Route: 048
     Dates: start: 202401

REACTIONS (5)
  - Fatigue [Unknown]
  - Depressed level of consciousness [Unknown]
  - General physical health deterioration [Unknown]
  - Disturbance in attention [Unknown]
  - Decreased activity [Unknown]

NARRATIVE: CASE EVENT DATE: 20250301
